FAERS Safety Report 16073166 (Version 4)
Quarter: 2019Q2

REPORT INFORMATION
  Report Type: Spontaneous
  Country: JP (occurrence: JP)
  Receive Date: 20190314
  Receipt Date: 20190605
  Transmission Date: 20190711
  Serious: Yes (Hospitalization, Disabling)
  Sender: FDA-Public Use
  Company Number: JP-ASTRAZENECA-2019SE33368

PATIENT
  Age: 72 Year
  Sex: Male
  Weight: 54 kg

DRUGS (12)
  1. ALLOID G [Concomitant]
     Active Substance: SODIUM ALGINATE
     Indication: RADIATION OESOPHAGITIS
     Route: 048
     Dates: start: 20181117, end: 20190228
  2. MAGMITT [Concomitant]
     Active Substance: MAGNESIUM OXIDE
     Indication: CONSTIPATION
     Route: 048
     Dates: start: 20181109
  3. LOXOPROFEN [Concomitant]
     Active Substance: LOXOPROFEN
     Indication: RADIATION OESOPHAGITIS
     Route: 048
     Dates: start: 20181117
  4. JANUVIA [Concomitant]
     Active Substance: SITAGLIPTIN PHOSPHATE
     Indication: DIABETES MELLITUS
     Route: 048
  5. OPSO [Concomitant]
     Active Substance: MORPHINE HYDROCHLORIDE
     Indication: CANCER PAIN
     Dosage: 5 MG, AS REQUIRED, THREE TO FIVE TIMES DAILY
     Route: 048
     Dates: start: 20181126
  6. CRESTOR [Concomitant]
     Active Substance: ROSUVASTATIN CALCIUM
     Indication: HYPERLIPIDAEMIA
     Route: 048
  7. METGLUCO [Concomitant]
     Active Substance: METFORMIN HYDROCHLORIDE
     Indication: DIABETES MELLITUS
     Route: 048
  8. HUMULIN R [Concomitant]
     Active Substance: INSULIN HUMAN
     Indication: DIABETES MELLITUS
     Dosage: DOSE UNKNOWN (AS REQUIRED IN ACCORDANCE WITH BLOOD SUGAR LEVELS)
     Route: 058
     Dates: start: 20181106
  9. IMFINZI [Suspect]
     Active Substance: DURVALUMAB
     Indication: NON-SMALL CELL LUNG CANCER
     Route: 041
     Dates: start: 20190123, end: 20190206
  10. LANSOPRAZOLE. [Concomitant]
     Active Substance: LANSOPRAZOLE
     Indication: RADIATION OESOPHAGITIS
     Route: 048
     Dates: start: 20181225
  11. PURSENNID [SENNOSIDE A+B CALCIUM] [Concomitant]
     Active Substance: SENNOSIDES A AND B
     Indication: CONSTIPATION
     Dosage: 24.0MG AS REQUIRED
     Route: 048
     Dates: start: 20181128, end: 20190128
  12. BASEN [Concomitant]
     Active Substance: VOGLIBOSE
     Indication: DIABETES MELLITUS
     Route: 048

REACTIONS (9)
  - Pericarditis malignant [Recovering/Resolving]
  - Hepatic function abnormal [Recovering/Resolving]
  - Pericardial effusion malignant [Recovering/Resolving]
  - Radiation pneumonitis [Recovering/Resolving]
  - Malignant neoplasm progression [Unknown]
  - Pleural effusion [Recovering/Resolving]
  - Cardiac tamponade [Recovering/Resolving]
  - Hepatic congestion [Recovering/Resolving]
  - Dyspnoea [Recovering/Resolving]

NARRATIVE: CASE EVENT DATE: 20190220
